FAERS Safety Report 15484581 (Version 1)
Quarter: 2018Q4

REPORT INFORMATION
  Report Type: Spontaneous
  Country: MX (occurrence: MX)
  Receive Date: 20181010
  Receipt Date: 20181010
  Transmission Date: 20190205
  Serious: Yes (Other)
  Sender: FDA-Public Use
  Company Number: MX-PFIZER INC-2018149885

PATIENT
  Age: 11 Year
  Sex: Male
  Weight: 31 kg

DRUGS (1)
  1. GENOTROPIN [Suspect]
     Active Substance: SOMATROPIN
     Dosage: UNK

REACTIONS (5)
  - Product prescribing error [Unknown]
  - Asthenia [Unknown]
  - Immobile [Unknown]
  - Slow speech [Unknown]
  - Feeling cold [Unknown]

NARRATIVE: CASE EVENT DATE: 20180510
